FAERS Safety Report 5254781-8 (Version None)
Quarter: 2007Q1

REPORT INFORMATION
  Report Type: 
  Country: None (occurrence: None)
  Receive Date: 20070301
  Receipt Date: 20070301
  Transmission Date: 20070707
  Serious: No
  Sender: FDA-Public Use
  Company Number: None

PATIENT
  Age: 51 Year
  Sex: Female
  Weight: 61.2356 kg

DRUGS (1)
  1. ZICAM MATRIXX [Suspect]
     Indication: NASOPHARYNGITIS
     Dosage: SMALL AMOUNT OF GEL 2 X PER DAY NASAL
     Route: 045
     Dates: start: 20070210, end: 20070215

REACTIONS (1)
  - ANOSMIA [None]
